FAERS Safety Report 11291948 (Version 1)
Quarter: 2015Q3

REPORT INFORMATION
  Report Type: Spontaneous
  Country: US (occurrence: None)
  Receive Date: 20150721
  Receipt Date: 20150721
  Transmission Date: 20151125
  Serious: Yes (Hospitalization)
  Sender: FDA-Public Use
  Company Number: None

PATIENT
  Age: 53 Year
  Sex: Female
  Weight: 106.6 kg

DRUGS (15)
  1. BUSPAR [Concomitant]
     Active Substance: BUSPIRONE HYDROCHLORIDE
  2. IMODIUM [Concomitant]
     Active Substance: LOPERAMIDE HYDROCHLORIDE
  3. BEVACIZUMAB [Suspect]
     Active Substance: BEVACIZUMAB
     Indication: LUNG NEOPLASM MALIGNANT
     Dosage: 1600MG IN 100ML IV Q3W
     Route: 042
     Dates: start: 20150416
  4. FISH OIL [Concomitant]
     Active Substance: FISH OIL
  5. ERLOTINIB [Suspect]
     Active Substance: ERLOTINIB
     Indication: LUNG NEOPLASM MALIGNANT
     Route: 048
     Dates: start: 20150416
  6. XANAX [Concomitant]
     Active Substance: ALPRAZOLAM
  7. LAMICTAL [Concomitant]
     Active Substance: LAMOTRIGINE
  8. ZOLOFT [Concomitant]
     Active Substance: SERTRALINE HYDROCHLORIDE
  9. COENZYME Q-10 [Concomitant]
  10. CIPRO [Concomitant]
     Active Substance: CIPROFLOXACIN HYDROCHLORIDE
  11. CRESTOR [Concomitant]
     Active Substance: ROSUVASTATIN CALCIUM
  12. MULTIVITAMIN [Concomitant]
     Active Substance: VITAMINS
  13. METOPROLOL [Concomitant]
     Active Substance: METOPROLOL
  14. WELLBUTRIN [Concomitant]
     Active Substance: BUPROPION HYDROCHLORIDE
  15. HYDROCORTISONE. [Concomitant]
     Active Substance: HYDROCORTISONE

REACTIONS (1)
  - Anal abscess [None]

NARRATIVE: CASE EVENT DATE: 20150714
